FAERS Safety Report 4524064-X (Version None)
Quarter: 2004Q4

REPORT INFORMATION
  Report Type: 
  Country: None (occurrence: None)
  Receive Date: 20041119
  Receipt Date: 20040810
  Transmission Date: 20050328
  Serious: No
  Sender: FDA-Public Use
  Company Number: PHEH2004US08597

PATIENT
  Age: 72 Year
  Sex: Female

DRUGS (2)
  1. ZELNORM [Suspect]
     Indication: IRRITABLE BOWEL SYNDROME
     Dosage: 6 MG, BID
     Dates: end: 20040808
  2. NEXIUM/USA/ (ESOMEPRAZOLE MAGNESIUM) [Concomitant]

REACTIONS (2)
  - EYELID OEDEMA [None]
  - VISION BLURRED [None]
